FAERS Safety Report 20387642 (Version 1)
Quarter: 2022Q1

REPORT INFORMATION
  Report Type: Spontaneous
  Country: US (occurrence: US)
  Receive Date: 20220127
  Receipt Date: 20220127
  Transmission Date: 20220423
  Serious: No
  Sender: FDA-Public Use
  Company Number: US-ALLERGAN-2116885US

PATIENT
  Age: 61 Year
  Sex: Male

DRUGS (5)
  1. BOTOX [Suspect]
     Active Substance: ONABOTULINUMTOXINA
     Indication: Hypertonic bladder
     Dosage: 75 UNITS, SINGLE
     Dates: start: 20201215, end: 20201215
  2. RAPAFLO [Concomitant]
     Active Substance: SILODOSIN
     Indication: Benign prostatic hyperplasia
     Dosage: 4 MG, QD
     Dates: start: 2019, end: 20210322
  3. RAPAFLO [Concomitant]
     Active Substance: SILODOSIN
     Indication: Urinary retention
     Dosage: 4 MG, BID
     Dates: start: 20210322
  4. REMERON [Concomitant]
     Active Substance: MIRTAZAPINE
     Indication: Depression
  5. ZOPICLONE [Concomitant]
     Active Substance: ZOPICLONE
     Indication: Sleep disorder

REACTIONS (4)
  - Depression [Recovered/Resolved]
  - Impaired quality of life [Recovered/Resolved]
  - Urinary retention [Not Recovered/Not Resolved]
  - Urinary tract infection [Not Recovered/Not Resolved]

NARRATIVE: CASE EVENT DATE: 20201220
